FAERS Safety Report 10009600 (Version 2)
Quarter: 2014Q1

REPORT INFORMATION
  Report Type: Spontaneous
  Country: US (occurrence: US)
  Receive Date: 20140312
  Receipt Date: 20140312
  Transmission Date: 20141002
  Serious: No
  Sender: FDA-Public Use
  Company Number: US-INCYTE CORPORATION-2012IN002143

PATIENT
  Age: 74 Year
  Sex: Female
  Weight: 73.47 kg

DRUGS (12)
  1. JAKAFI [Suspect]
     Indication: MYELOFIBROSIS
     Dosage: 7.5 MG, BID
     Route: 048
     Dates: start: 20120731, end: 2012
  2. JAKAFI [Suspect]
     Dosage: 7.5 MG/10 MG, QD
     Route: 048
     Dates: start: 2012
  3. CYMBALTA [Suspect]
     Dosage: NOT SPECIFIED
     Dates: start: 2012, end: 2012
  4. METFORMIN [Concomitant]
  5. MODAFINIL [Concomitant]
  6. SYNTHROID [Concomitant]
  7. PANTOPRAZOLE [Concomitant]
  8. MELOXICAM [Concomitant]
  9. AMLODIPINE [Concomitant]
  10. FUROSEMIDE [Concomitant]
  11. ESTRADIOL [Concomitant]
  12. PROCRIT [Concomitant]

REACTIONS (3)
  - Insomnia [Recovered/Resolved]
  - Wrong technique in drug usage process [Unknown]
  - Dizziness [Recovered/Resolved]
